FAERS Safety Report 25713942 (Version 1)
Quarter: 2025Q3

REPORT INFORMATION
  Report Type: Report from Study
  Country: US (occurrence: US)
  Receive Date: 20250822
  Receipt Date: 20250822
  Transmission Date: 20251020
  Serious: Yes (Other)
  Sender: ACADIA PHARMACEUTICALS
  Company Number: US-ACADIA PHARMACEUTICALS INC.-ACA-2025-PIM-009384

PATIENT
  Age: 80 Year
  Sex: Male

DRUGS (13)
  1. NUPLAZID [Suspect]
     Active Substance: PIMAVANSERIN TARTRATE
     Indication: Parkinson^s disease
     Dosage: 34 MILLIGRAM, QD
     Route: 048
     Dates: start: 20240603
  2. NUPLAZID [Suspect]
     Active Substance: PIMAVANSERIN TARTRATE
     Indication: Hallucination
  3. LEXAPRO [Concomitant]
     Active Substance: ESCITALOPRAM OXALATE
  4. FOLIC ACID [Concomitant]
     Active Substance: FOLIC ACID
  5. METFORMIN [Concomitant]
     Active Substance: METFORMIN HYDROCHLORIDE
  6. MEMANTINE [Concomitant]
     Active Substance: MEMANTINE
  7. OMEPRAZOLE [Concomitant]
     Active Substance: OMEPRAZOLE
  8. VITAMIN B COMPLEX [Concomitant]
     Active Substance: CYANOCOBALAMIN\DEXPANTHENOL\NIACINAMIDE\PYRIDOXINE HYDROCHLORIDE\RIBOFLAVIN 5^-PHOSPHATE SODIUM\THIA
  9. VITAMIN C [Concomitant]
     Active Substance: ASCORBIC ACID
  10. VITAMIN D3 [Concomitant]
     Active Substance: CHOLECALCIFEROL
  11. MIDODRINE [Concomitant]
     Active Substance: MIDODRINE
  12. TAMSULOSIN [Concomitant]
     Active Substance: TAMSULOSIN
  13. FINASTERIDE [Concomitant]
     Active Substance: FINASTERIDE

REACTIONS (3)
  - Bacterial prostatitis [Not Recovered/Not Resolved]
  - Urinary retention [Not Recovered/Not Resolved]
  - Prostatomegaly [Not Recovered/Not Resolved]

NARRATIVE: CASE EVENT DATE: 20250806
